FAERS Safety Report 24710682 (Version 1)
Quarter: 2024Q4

REPORT INFORMATION
  Report Type: Spontaneous
  Country: GB (occurrence: GB)
  Receive Date: 20241209
  Receipt Date: 20241209
  Transmission Date: 20250115
  Serious: Yes (Other)
  Sender: SANDOZ
  Company Number: None

PATIENT
  Age: 40 Year
  Sex: Female
  Weight: 70 kg

DRUGS (1)
  1. ESTRADIOL [Suspect]
     Active Substance: ESTRADIOL
     Indication: Adverse drug reaction
     Dosage: 100 MCG TWICE WEEKLY,TRANSDERMAL PATCH
     Route: 065
     Dates: start: 20241204, end: 20241205

REACTIONS (1)
  - General symptom [Unknown]

NARRATIVE: CASE EVENT DATE: 20241205
